FAERS Safety Report 4457558-6 (Version None)
Quarter: 2004Q3

REPORT INFORMATION
  Report Type: 
  Country: None (occurrence: None)
  Receive Date: 20040922
  Receipt Date: 20040916
  Transmission Date: 20050211
  Serious: Yes (Death)
  Sender: FDA-Public Use
  Company Number: 2004UW10909

PATIENT
  Age: 67 Year
  Sex: Male
  Weight: 72.5755 kg

DRUGS (5)
  1. ZESTORETIC [Suspect]
     Indication: HYPERTENSION
     Dosage: 20 / 12.5 MG
     Dates: start: 19990917, end: 19991120
  2. PLAVIX [Concomitant]
  3. CARDURA [Concomitant]
  4. ARICEPT [Concomitant]
  5. PROSCAR [Concomitant]

REACTIONS (8)
  - ACUTE RESPIRATORY DISTRESS SYNDROME [None]
  - FAECES DISCOLOURED [None]
  - HEPATIC FAILURE [None]
  - HEPATOTOXICITY [None]
  - MULTI-ORGAN DISORDER [None]
  - PNEUMONIA ASPIRATION [None]
  - RENAL FAILURE ACUTE [None]
  - SEPTIC SHOCK [None]
